FAERS Safety Report 25198103 (Version 1)
Quarter: 2025Q2

REPORT INFORMATION
  Report Type: Spontaneous
  Country: US (occurrence: None)
  Receive Date: 20250414
  Receipt Date: 20250414
  Transmission Date: 20250717
  Serious: Yes (Life-Threatening, Hospitalization)
  Sender: FDA-CTU
  Company Number: None

PATIENT
  Age: 42 Year
  Sex: Male
  Weight: 67.5 kg

DRUGS (2)
  1. LONCASTUXIMAB TESIRINE [Suspect]
     Active Substance: LONCASTUXIMAB TESIRINE
     Indication: Diffuse large B-cell lymphoma refractory
     Route: 042
     Dates: start: 20250318, end: 20250411
  2. DEXAMETHASONE [Suspect]
     Active Substance: DEXAMETHASONE

REACTIONS (15)
  - Blood glucose decreased [None]
  - Blood lactate dehydrogenase increased [None]
  - Blood lactic acid increased [None]
  - Leukopenia [None]
  - Thrombocytopenia [None]
  - Anaemia [None]
  - Hepatosplenomegaly [None]
  - Hepatomegaly [None]
  - Hepatic steatosis [None]
  - Hepatic lesion [None]
  - Transient hepatic attenuation differences [None]
  - Hepatic necrosis [None]
  - Asterixis [None]
  - Lymphoma [None]
  - Hepatic cyst [None]

NARRATIVE: CASE EVENT DATE: 20250411
